FAERS Safety Report 8136154-3 (Version None)
Quarter: 2012Q1

REPORT INFORMATION
  Report Type: 
  Country: None (occurrence: None)
  Receive Date: 20120214
  Receipt Date: 20120208
  Transmission Date: 20120608
  Serious: Yes (Hospitalization, Other)
  Sender: FDA-Public Use
  Company Number: DE-MERCK-1202DEU00040

PATIENT
  Age: 79 Year
  Sex: Male
  Weight: 76 kg

DRUGS (13)
  1. JANUVIA [Suspect]
     Route: 048
     Dates: start: 20100828, end: 20120101
  2. LEVOTHYROXINE SODIUM [Concomitant]
     Route: 048
     Dates: start: 20100801
  3. MIRTAZAPINE [Concomitant]
     Route: 048
     Dates: start: 20100801
  4. LACTULOSE [Concomitant]
     Route: 048
     Dates: start: 20100801
  5. HYDROCHLOROTHIAZIDE AND RAMIPRIL [Concomitant]
     Route: 048
     Dates: start: 20100801
  6. TOLPERISONE [Concomitant]
     Route: 048
     Dates: start: 20100801
  7. POLYETHYLENE GLYCOL 3350 AND POTASSIUM CHLORIDE AND SODIUM BICARBONATE [Concomitant]
     Route: 048
     Dates: start: 20100801
  8. TROSPIUM CHLORIDE [Concomitant]
     Route: 048
     Dates: start: 20100801
  9. SIMVASTATIN [Concomitant]
     Route: 048
     Dates: start: 20100801
  10. ASPIRIN [Concomitant]
     Route: 048
     Dates: start: 20100801
  11. LORMETAZEPAM [Concomitant]
     Route: 048
     Dates: start: 20100801
  12. PANTOPRAZOLE [Concomitant]
     Route: 048
     Dates: start: 20100801
  13. GABAPENTIN [Concomitant]
     Route: 048
     Dates: start: 20100801

REACTIONS (8)
  - SKIN ULCER [None]
  - POLYNEUROPATHY [None]
  - PEMPHIGOID [None]
  - HYPERLIPIDAEMIA [None]
  - CEREBROVASCULAR ACCIDENT [None]
  - ECZEMA [None]
  - HYPERTENSION [None]
  - HEMIPARESIS [None]
